FAERS Safety Report 13065647 (Version 1)
Quarter: 2016Q4

REPORT INFORMATION
  Report Type: Report from Study
  Country: DE (occurrence: DE)
  Receive Date: 20161227
  Receipt Date: 20161227
  Transmission Date: 20170207
  Serious: Yes (Hospitalization)
  Sender: FDA-Public Use
  Company Number: DE-IPCA LABORATORIES LIMITED-IPC201612-001021

PATIENT
  Age: 70 Year
  Sex: Female

DRUGS (4)
  1. METFORMIN HYDROCHLORIDE. [Suspect]
     Active Substance: METFORMIN HYDROCHLORIDE
  2. PAROXETINE. [Suspect]
     Active Substance: PAROXETINE
  3. VALERIANA [Suspect]
     Active Substance: VALERIAN
  4. MULTIVITAMINS [Suspect]
     Active Substance: VITAMINS

REACTIONS (1)
  - Liver injury [Unknown]
